APPROVED DRUG PRODUCT: ZURNAI (AUTOINJECTOR)
Active Ingredient: NALMEFENE HYDROCHLORIDE
Strength: EQ 1.5MG BASE/0.5ML (EQ 1.5MG BASE/0.5ML)
Dosage Form/Route: SOLUTION;INTRAMUSCULAR, SUBCUTANEOUS
Application: N218590 | Product #001
Applicant: PURDUE PHARMA LP
Approved: Aug 7, 2024 | RLD: Yes | RS: Yes | Type: RX

PATENTS:
Patent 11865112 | Expires: Nov 5, 2039
Patent 11857547 | Expires: Nov 5, 2039

EXCLUSIVITY:
Code: NP | Date: Aug 7, 2027